FAERS Safety Report 24799376 (Version 1)
Quarter: 2025Q1

REPORT INFORMATION
  Report Type: Spontaneous
  Country: CN (occurrence: CN)
  Receive Date: 20250102
  Receipt Date: 20250102
  Transmission Date: 20250409
  Serious: Yes (Life-Threatening)
  Sender: ACCORD
  Company Number: CN-Accord-462180

PATIENT
  Age: 60 Year
  Sex: Male

DRUGS (5)
  1. CARBOPLATIN [Suspect]
     Active Substance: CARBOPLATIN
     Indication: Small cell lung cancer metastatic
     Route: 042
     Dates: start: 202203, end: 2022
  2. ETOPOSIDE [Suspect]
     Active Substance: ETOPOSIDE
     Indication: Small cell lung cancer metastatic
     Route: 048
     Dates: start: 202203, end: 2022
  3. DURVALUMAB [Suspect]
     Active Substance: DURVALUMAB
     Indication: Small cell lung cancer metastatic
     Route: 042
     Dates: start: 202203, end: 2022
  4. OCTREOTIDE ACETATE [Concomitant]
     Active Substance: OCTREOTIDE ACETATE
     Indication: Cushing^s syndrome
     Dates: start: 2022
  5. MIFEPRISTONE [Concomitant]
     Active Substance: MIFEPRISTONE
     Indication: Cushing^s syndrome
     Dates: start: 2022

REACTIONS (2)
  - Myelosuppression [Unknown]
  - Klebsiella infection [Unknown]

NARRATIVE: CASE EVENT DATE: 20220301
